FAERS Safety Report 13812951 (Version 1)
Quarter: 2017Q3

REPORT INFORMATION
  Report Type: Spontaneous
  Country: JP (occurrence: JP)
  Receive Date: 20170731
  Receipt Date: 20170731
  Transmission Date: 20171127
  Serious: Yes (Other)
  Sender: FDA-Public Use
  Company Number: JP-ROCHE-1970012

PATIENT
  Age: 70 Year
  Sex: Male

DRUGS (7)
  1. RAMUCIRUMAB [Suspect]
     Active Substance: RAMUCIRUMAB
     Indication: LUNG ADENOCARCINOMA
     Dosage: ONE COURSES?DOSAGE IS UNCERTAIN.
     Route: 065
     Dates: start: 20170620
  2. DOCETAXEL. [Suspect]
     Active Substance: DOCETAXEL
     Indication: LUNG ADENOCARCINOMA
     Dosage: ONE COURSES?DOSAGE IS UNCERTAIN.
     Route: 041
     Dates: start: 20170620
  3. CARBOPLATIN. [Suspect]
     Active Substance: CARBOPLATIN
     Indication: LUNG ADENOCARCINOMA
     Dosage: FOUR COURSES?DOSAGE IS UNCERTAIN.
     Route: 041
     Dates: start: 2014
  4. PACLITAXEL. [Suspect]
     Active Substance: PACLITAXEL
     Indication: LUNG ADENOCARCINOMA
     Dosage: FOUR COURSES?DOSAGE IS UNCERTAIN.
     Route: 041
     Dates: start: 2014, end: 2014
  5. AVASTIN [Suspect]
     Active Substance: BEVACIZUMAB
     Indication: LUNG ADENOCARCINOMA
     Dosage: MOST RECENT DOSE ON 01/OCT/2014??FOUR COURSES?TREATMENT LINE: 1ST LINE
     Route: 041
     Dates: start: 20140701
  6. DOCETAXEL. [Suspect]
     Active Substance: DOCETAXEL
     Dosage: DOSAGE IS UNCERTAIN.
     Route: 041
     Dates: start: 20170719
  7. RAMUCIRUMAB [Suspect]
     Active Substance: RAMUCIRUMAB
     Dosage: DOSAGE IS UNCERTAIN.
     Route: 065
     Dates: start: 20170719

REACTIONS (6)
  - Bone marrow failure [Unknown]
  - Urinary tract infection [Unknown]
  - Chronic obstructive pulmonary disease [Unknown]
  - Metastases to central nervous system [Unknown]
  - Decreased appetite [Unknown]
  - Osteonecrosis [Not Recovered/Not Resolved]

NARRATIVE: CASE EVENT DATE: 201408
